FAERS Safety Report 4805251-X (Version None)
Quarter: 2005Q4

REPORT INFORMATION
  Report Type: 
  Country: None (occurrence: None)
  Receive Date: 20051020
  Receipt Date: 20041002
  Transmission Date: 20060501
  Serious: Yes (Hospitalization, Disabling, Other)
  Sender: FDA-Public Use
  Company Number: DE-MERCK-0410DEU00075

PATIENT
  Age: 66 Year
  Sex: Female
  Weight: 76 kg

DRUGS (1)
  1. VIOXX [Suspect]
     Indication: PAIN
     Route: 048
     Dates: start: 20031126, end: 20041002

REACTIONS (12)
  - DEAFNESS [None]
  - DIZZINESS [None]
  - DYSPNOEA [None]
  - GRANULOMA [None]
  - HAEMORRHAGE [None]
  - HEART RATE INCREASED [None]
  - HYPOACUSIS [None]
  - INFLAMMATION [None]
  - SUDDEN HEARING LOSS [None]
  - TINNITUS [None]
  - TOOTH DISORDER [None]
  - TRACHEOBRONCHITIS [None]
